FAERS Safety Report 13442867 (Version 1)
Quarter: 2017Q2

REPORT INFORMATION
  Report Type: Spontaneous
  Country: US (occurrence: US)
  Receive Date: 20170413
  Receipt Date: 20170413
  Transmission Date: 20170830
  Serious: Yes (Hospitalization)
  Sender: FDA-Public Use
  Company Number: None

PATIENT
  Age: 41 Year
  Sex: Male
  Weight: 66.8 kg

DRUGS (12)
  1. CETUXIMAB. [Suspect]
     Active Substance: CETUXIMAB
     Indication: HEAD AND NECK CANCER
     Route: 042
     Dates: start: 20170307, end: 20170330
  2. NEOMYCIN-POLYMYXIN-DESAMETH [Concomitant]
  3. OXYCODONE [Concomitant]
     Active Substance: OXYCODONE
  4. PALBOCICLIB [Suspect]
     Active Substance: PALBOCICLIB
     Indication: HEAD AND NECK CANCER
     Dosage: 125 MG DAYS 1-21 PO
     Route: 048
     Dates: start: 20170307, end: 20170329
  5. MORPHIN SULFATE [Concomitant]
  6. COMPAZINE [Concomitant]
     Active Substance: PROCHLORPERAZINE MALEATE
  7. PALBOCICLIB [Suspect]
     Active Substance: PALBOCICLIB
     Indication: SQUAMOUS CELL CARCINOMA
     Dosage: 125 MG DAYS 1-21 PO
     Route: 048
     Dates: start: 20170307, end: 20170329
  8. LEVOFLOXACIN. [Concomitant]
     Active Substance: LEVOFLOXACIN
  9. DEXAMETHASONE. [Concomitant]
     Active Substance: DEXAMETHASONE
  10. ONDANSETRON [Concomitant]
     Active Substance: ONDANSETRON
  11. CETUXIMAB. [Suspect]
     Active Substance: CETUXIMAB
     Indication: SQUAMOUS CELL CARCINOMA
     Route: 042
     Dates: start: 20170307, end: 20170330
  12. AZITHROMYCIN ANHYDROUS. [Concomitant]
     Active Substance: AZITHROMYCIN ANHYDROUS

REACTIONS (7)
  - Pyrexia [None]
  - Bacterial test positive [None]
  - Creatinine urine increased [None]
  - Red blood cells urine [None]
  - Pneumonia [None]
  - Productive cough [None]
  - Tachycardia [None]

NARRATIVE: CASE EVENT DATE: 20170402
